FAERS Safety Report 17303568 (Version 5)
Quarter: 2020Q2

REPORT INFORMATION
  Report Type: Report from Study
  Country: US (occurrence: US)
  Receive Date: 20200122
  Receipt Date: 20200619
  Transmission Date: 20200713
  Serious: Yes (Hospitalization)
  Sender: FDA-Public Use
  Company Number: US-ACTELION-A-NJ2020-200461

PATIENT
  Age: 8 Year
  Sex: Male
  Weight: 27.66 kg

DRUGS (7)
  1. TRACLEER [Suspect]
     Active Substance: BOSENTAN
     Dosage: 32 MG, BID
     Route: 048
  2. TADALAFIL. [Suspect]
     Active Substance: TADALAFIL
     Indication: PRODUCT USED FOR UNKNOWN INDICATION
     Route: 065
  3. TRACLEER [Suspect]
     Active Substance: BOSENTAN
     Indication: PULMONARY ARTERIAL HYPERTENSION
     Dosage: 62 MG, BID
     Route: 048
     Dates: start: 20191013
  4. SILDENAFIL. [Concomitant]
     Active Substance: SILDENAFIL
     Dosage: 26 MG, TID
     Dates: start: 20191216
  5. OXYGEN. [Concomitant]
     Active Substance: OXYGEN
  6. REMODULIN [Suspect]
     Active Substance: TREPROSTINIL
     Indication: PRODUCT USED FOR UNKNOWN INDICATION
     Dosage: 14 NG/KG
     Route: 065
     Dates: start: 20191110
  7. LASIX [Concomitant]
     Active Substance: FUROSEMIDE
     Dosage: 20 MG, QD
     Dates: start: 20191106

REACTIONS (10)
  - Device malfunction [Recovered/Resolved]
  - Catheter management [Unknown]
  - Skin abrasion [Unknown]
  - Pruritus [Unknown]
  - Catheter site erythema [Unknown]
  - Hospitalisation [Unknown]
  - Catheter site irritation [Unknown]
  - Rash [Unknown]
  - Device dislocation [Unknown]
  - Vomiting [Recovering/Resolving]

NARRATIVE: CASE EVENT DATE: 20200110
